FAERS Safety Report 7779668-8 (Version None)
Quarter: 2011Q3

REPORT INFORMATION
  Report Type: 
  Country: None (occurrence: None)
  Receive Date: 20110927
  Receipt Date: 20101202
  Transmission Date: 20111222
  Serious: Yes (Other)
  Sender: FDA-Public Use
  Company Number: US-BAYER-200924408NA

PATIENT
  Age: 66 Year
  Sex: Female
  Weight: 55.4 kg

DRUGS (61)
  1. ADALAT CC [Concomitant]
  2. PRAMOSONE [Concomitant]
  3. HEPARIN [Concomitant]
  4. CHOLESTEROL- AND TRIGLYCERIDE REDUCERS [Concomitant]
  5. PROGRAF [Concomitant]
  6. CALCITRIOL [Concomitant]
  7. LIDOCAINE [Concomitant]
  8. MAGNEVIST [Suspect]
     Indication: ANGIOGRAM
  9. MAGNEVIST [Suspect]
  10. NITROGLYCERIN [Concomitant]
  11. RENVELA [Concomitant]
  12. EPOGEN [Concomitant]
  13. MAGNEVIST [Suspect]
     Indication: VENOGRAM
     Dosage: UNK UNK, ONCE
     Dates: start: 20021001, end: 20021001
  14. GADOLINIUM IN UNSPECIFIED DRUG [Suspect]
     Indication: NUCLEAR MAGNETIC RESONANCE IMAGING
     Dosage: UNK UNK, ONCE
     Route: 042
     Dates: start: 20070228, end: 20070228
  15. LASIX [Concomitant]
  16. COREG [Concomitant]
  17. HYDROCHLOROTHIAZIDE [Concomitant]
  18. CLONIDINE [Concomitant]
  19. NEURONTIN [Concomitant]
  20. LEFLUNOMIDE [Concomitant]
  21. OMNISCAN [Suspect]
     Indication: NUCLEAR MAGNETIC RESONANCE IMAGING
     Dosage: 22 ML, ONCE
     Route: 042
     Dates: start: 20040628, end: 20040628
  22. OMNISCAN [Suspect]
     Dosage: 45 ML, ONCE
     Dates: start: 20081003, end: 20081003
  23. EPOGEN [Concomitant]
  24. ZOFRAN [Concomitant]
  25. ACIPHEX [Concomitant]
  26. TIAZAC [Concomitant]
  27. STARLIX [Concomitant]
  28. ASPIRIN [Concomitant]
  29. DIAZEPAM [Concomitant]
  30. FERROUS SULFATE TAB [Concomitant]
  31. ALTACE [Concomitant]
  32. AMBIEN [Concomitant]
  33. LEXAPRO [Concomitant]
  34. ACETYLSALICYLIC ACID SRT [Concomitant]
  35. FERROUS SULFATE TAB [Concomitant]
  36. MAGNEVIST [Suspect]
     Indication: NUCLEAR MAGNETIC RESONANCE IMAGING
     Dosage: UNK UNK, ONCE
     Dates: start: 20000513, end: 20000513
  37. OMNISCAN [Suspect]
     Dosage: 95 ML, ONCE
     Dates: start: 20081204, end: 20081204
  38. TRENTAL [Concomitant]
  39. ULTRACET [Concomitant]
  40. PREVACID [Concomitant]
  41. RYTHMOL [Concomitant]
  42. ANTIBIOTICS [Concomitant]
  43. MYCOPHENOLATE MOFETIL (CELLCEPT) [Concomitant]
  44. COLACE [Concomitant]
  45. ZANTAC [Concomitant]
  46. IRON SUPPLEMENT [Concomitant]
  47. XANAX [Concomitant]
  48. HUMULIN R [Concomitant]
  49. INSULIN LENTE [Concomitant]
  50. PLAQUENIL [Concomitant]
  51. NORVASC [Concomitant]
  52. KAYEXALATE [Concomitant]
  53. VICODIN [Concomitant]
  54. OMNISCAN [Suspect]
     Dosage: 15 ML, ONCE
     Dates: start: 20091222, end: 20091222
  55. ZEMPLAR [Concomitant]
  56. PREDNISONE [Concomitant]
  57. VITAMIN TAB [Concomitant]
  58. TOPROL-XL [Concomitant]
  59. REMAX [Concomitant]
  60. LISINOPRIL [Concomitant]
  61. FUROSEMIDE [Concomitant]

REACTIONS (28)
  - RASH [None]
  - EMOTIONAL DISTRESS [None]
  - ANXIETY [None]
  - FRUSTRATION [None]
  - NEUROPATHY PERIPHERAL [None]
  - SKIN INDURATION [None]
  - ERYTHEMA [None]
  - ASTHENIA [None]
  - RENAL FAILURE [None]
  - DIALYSIS [None]
  - NEPHROGENIC SYSTEMIC FIBROSIS [None]
  - RASH ERYTHEMATOUS [None]
  - HYPOTONIA [None]
  - QUALITY OF LIFE DECREASED [None]
  - BK VIRUS INFECTION [None]
  - MYOSITIS [None]
  - SKIN PLAQUE [None]
  - BALANCE DISORDER [None]
  - PAIN [None]
  - JOINT RANGE OF MOTION DECREASED [None]
  - ABASIA [None]
  - MOBILITY DECREASED [None]
  - OEDEMA PERIPHERAL [None]
  - MYALGIA [None]
  - DEPRESSION [None]
  - GENERAL PHYSICAL HEALTH DETERIORATION [None]
  - SKIN HYPERTROPHY [None]
  - MUSCULAR WEAKNESS [None]
